FAERS Safety Report 11175371 (Version 1)
Quarter: 2015Q2

REPORT INFORMATION
  Report Type: Spontaneous
  Country: US (occurrence: None)
  Receive Date: 20150515
  Receipt Date: 20150515
  Transmission Date: 20150821
  Serious: Yes (Hospitalization, Other)
  Sender: FDA-Public Use
  Company Number: 121280

PATIENT
  Age: 70 Year
  Sex: Male
  Weight: 97.9 kg

DRUGS (18)
  1. GLUCOPHAGE [Concomitant]
     Active Substance: METFORMIN HYDROCHLORIDE
  2. GEMFIBROZIL. [Concomitant]
     Active Substance: GEMFIBROZIL
  3. GABAPENTIN. [Concomitant]
     Active Substance: GABAPENTIN
  4. CALCIU D (CALCIUM CARBONATE, COLECALCIFEROL) [Concomitant]
  5. ENTOCORT (BUDESNIDE) [Concomitant]
  6. VITAMIN B12 (VITAMIN B) [Concomitant]
  7. CALCIUM (CALCIUM GLUCONATE) [Concomitant]
  8. VITAMIN D (COLECALCIFEROL) [Concomitant]
  9. VICODIN ES (HYDROCODONE BITARTRATE, PARACETAMOL) [Concomitant]
  10. MULTIVITAMIN (VITAMINS NOS) [Concomitant]
     Active Substance: VITAMINS
  11. IRON [Concomitant]
     Active Substance: IRON
  12. LOBIDAN (CALCIUM PHOSPHATE, LOBELINE SULFATE, MAGNESIUM CARBONATE) [Concomitant]
  13. LISINOPRIL. [Suspect]
     Active Substance: LISINOPRIL
  14. HYDROCODONE (HYDROCODONE BITARTRATE) [Concomitant]
     Active Substance: HYDROCODONE BITARTRATE
  15. METFORMIN [Concomitant]
     Active Substance: METFORMIN HYDROCHLORIDE
  16. CIMZIA [Suspect]
     Active Substance: CERTOLIZUMAB PEGOL
     Indication: CROHN^S DISEASE
     Dosage: EV 4 WEEKS
     Route: 058
     Dates: start: 20140505
  17. ALLOPURINOL. [Concomitant]
     Active Substance: ALLOPURINOL
  18. NEURONTIN [Concomitant]
     Active Substance: GABAPENTIN

REACTIONS (2)
  - Small intestinal obstruction [None]
  - Arthralgia [None]

NARRATIVE: CASE EVENT DATE: 201405
